FAERS Safety Report 12176005 (Version 1)
Quarter: 2016Q1

REPORT INFORMATION
  Report Type: Spontaneous
  Country: US (occurrence: US)
  Receive Date: 20160314
  Receipt Date: 20160314
  Transmission Date: 20160526
  Serious: No
  Sender: FDA-Public Use
  Company Number: US-ENDO PHARMACEUTICALS INC.-2015-003048

PATIENT
  Sex: Male
  Weight: 95.34 kg

DRUGS (1)
  1. XIAFLEX [Suspect]
     Active Substance: COLLAGENASE CLOSTRIDIUM HISTOLYTICUM
     Indication: DUPUYTREN^S CONTRACTURE
     Route: 065
     Dates: start: 201412, end: 201412

REACTIONS (5)
  - Nodule [Unknown]
  - Injection site pain [Recovered/Resolved]
  - Blood blister [Recovered/Resolved]
  - Drug ineffective [Unknown]
  - Administration site swelling [Unknown]
